FAERS Safety Report 23678981 (Version 1)
Quarter: 2024Q1

REPORT INFORMATION
  Report Type: Spontaneous
  Country: US (occurrence: None)
  Receive Date: 20240326
  Receipt Date: 20240326
  Transmission Date: 20240410
  Serious: Yes (Other)
  Sender: FDA-Public Use
  Company Number: None

PATIENT
  Age: 10 Year
  Sex: Female
  Weight: 55.9 kg

DRUGS (1)
  1. DUPIXENT [Suspect]
     Active Substance: DUPILUMAB
     Indication: Asthma
     Dosage: 10.14 ML EEVERY 2 WKS SUBCUTANEOUS
     Route: 058
     Dates: start: 20230119, end: 20240326

REACTIONS (4)
  - Conjunctivitis [None]
  - Eye swelling [None]
  - Eye pruritus [None]
  - Vision blurred [None]

NARRATIVE: CASE EVENT DATE: 20240228
